FAERS Safety Report 8377745-4 (Version None)
Quarter: 2012Q2

REPORT INFORMATION
  Report Type: 
  Country: None (occurrence: None)
  Receive Date: 20120522
  Receipt Date: 20120515
  Transmission Date: 20120825
  Serious: Yes (Hospitalization)
  Sender: FDA-Public Use
  Company Number: JP-GLAXOSMITHKLINE-B0802189A

PATIENT
  Age: 3 Decade
  Sex: Female

DRUGS (1)
  1. LAMICTAL [Suspect]
     Indication: BIPOLAR DISORDER
     Dosage: 75MG PER DAY
     Route: 048
     Dates: start: 20120301, end: 20120429

REACTIONS (3)
  - PHARYNGEAL INFLAMMATION [None]
  - RASH [None]
  - OCULAR HYPERAEMIA [None]
